FAERS Safety Report 5500238-6 (Version None)
Quarter: 2007Q4

REPORT INFORMATION
  Report Type: 
  Country: None (occurrence: None)
  Receive Date: 20071029
  Receipt Date: 20071018
  Transmission Date: 20080405
  Serious: Yes (Hospitalization)
  Sender: FDA-Public Use
  Company Number: US-JNJFOC-20071005169

PATIENT
  Age: 35 Year
  Sex: Female

DRUGS (1)
  1. INVEGA [Suspect]
     Indication: SCHIZOPHRENIA
     Route: 048
     Dates: start: 20071001, end: 20071014

REACTIONS (2)
  - SCHIZOPHRENIA [None]
  - VOMITING [None]
